FAERS Safety Report 4470743-2 (Version None)
Quarter: 2004Q4

REPORT INFORMATION
  Report Type: 
  Country: None (occurrence: None)
  Receive Date: 20041006
  Receipt Date: 20040824
  Transmission Date: 20050328
  Serious: Yes (Hospitalization)
  Sender: FDA-Public Use
  Company Number: 2004-BP-07342AU

PATIENT
  Age: 73 Year
  Sex: Female

DRUGS (8)
  1. SPIRIVA [Suspect]
     Dosage: 18 MCG (18 MCG, 1 DAILY)
     Route: 055
     Dates: start: 20040514
  2. VENTOLIN [Concomitant]
  3. SERETIDE (SALMETEROL/FLUTICASONE) [Concomitant]
  4. CALCITRIOL [Concomitant]
  5. LISINOPRIL [Concomitant]
  6. MAGNESIUM [Concomitant]
  7. ALLOPURINOL [Concomitant]
  8. IPRATROPIOUM (IPRATROPIUM) [Concomitant]

REACTIONS (2)
  - MUSCLE CRAMP [None]
  - PAIN IN EXTREMITY [None]
